FAERS Safety Report 4872138-6 (Version None)
Quarter: 2005Q4

REPORT INFORMATION
  Report Type: 
  Country: None (occurrence: None)
  Receive Date: 20051230
  Receipt Date: 20051216
  Transmission Date: 20060501
  Serious: Yes (Hospitalization)
  Sender: FDA-Public Use
  Company Number: 20052695

PATIENT
  Sex: Male

DRUGS (1)
  1. LIORESAL [Suspect]
     Indication: MUSCLE SPASTICITY
     Dosage: DAILY, INTRATHEACL
     Route: 037

REACTIONS (3)
  - BODY TEMPERATURE INCREASED [None]
  - DRUG WITHDRAWAL SYNDROME [None]
  - TACHYCARDIA [None]
